FAERS Safety Report 10265406 (Version 1)
Quarter: 2014Q2

REPORT INFORMATION
  Report Type: Report from Study
  Country: NL (occurrence: NL)
  Receive Date: 20140627
  Receipt Date: 20140627
  Transmission Date: 20141212
  Serious: Yes (Hospitalization)
  Sender: FDA-Public Use
  Company Number: NL-JNJFOC-20140610929

PATIENT
  Sex: Male

DRUGS (4)
  1. ABIRATERONE ACETATE [Suspect]
     Indication: PROSTATE CANCER
     Route: 048
     Dates: start: 20131107, end: 20140115
  2. NIFEDIPINE [Concomitant]
     Dosage: 1X30 MG
     Route: 065
  3. PREDNISONE [Concomitant]
     Route: 065
  4. ZOLADEX [Concomitant]
     Route: 065

REACTIONS (3)
  - Urinary tract obstruction [Unknown]
  - Disease progression [Unknown]
  - Hydronephrosis [Unknown]
